FAERS Safety Report 25627833 (Version 1)
Quarter: 2025Q3

REPORT INFORMATION
  Report Type: Spontaneous
  Country: US (occurrence: None)
  Receive Date: 20250731
  Receipt Date: 20250731
  Transmission Date: 20251020
  Serious: Yes (Hospitalization)
  Sender: FDA-CTU
  Company Number: None

PATIENT
  Age: 68 Year
  Sex: Female
  Weight: 115 kg

DRUGS (2)
  1. BRAFTOVI [Suspect]
     Active Substance: ENCORAFENIB
     Indication: Colon cancer stage IV
     Dosage: FREQUENCY : DAILY;?
     Route: 048
     Dates: start: 20250603, end: 20250730
  2. CETUXIMAB [Concomitant]
     Active Substance: CETUXIMAB
     Dates: start: 20241130, end: 20250523

REACTIONS (2)
  - Pancreatitis [None]
  - Acute kidney injury [None]

NARRATIVE: CASE EVENT DATE: 20250730
